FAERS Safety Report 12562223 (Version 1)
Quarter: 2016Q3

REPORT INFORMATION
  Report Type: Spontaneous
  Country: US (occurrence: US)
  Receive Date: 20160715
  Receipt Date: 20160715
  Transmission Date: 20161109
  Serious: Yes (Hospitalization, Other)
  Sender: FDA-Public Use
  Company Number: US-ACTAVIS-2016-15387

PATIENT
  Age: 2 Year
  Sex: Female

DRUGS (1)
  1. MORPHINE SULFATE (AELLC) [Suspect]
     Active Substance: MORPHINE SULFATE
     Indication: ACCIDENTAL OVERDOSE
     Dosage: UNK
     Route: 048

REACTIONS (4)
  - Leukoencephalopathy [Recovering/Resolving]
  - Hydrocephalus [Recovering/Resolving]
  - Encephalitis [Recovering/Resolving]
  - Accidental overdose [Recovering/Resolving]
